FAERS Safety Report 7585149-7 (Version None)
Quarter: 2011Q3

REPORT INFORMATION
  Report Type: 
  Country: None (occurrence: None)
  Receive Date: 20110701
  Receipt Date: 20110622
  Transmission Date: 20111222
  Serious: Yes (Hospitalization)
  Sender: FDA-Public Use
  Company Number: US-BIOGENIDEC-2011BI023334

PATIENT
  Age: 21 Year
  Sex: Female

DRUGS (4)
  1. TYSABRI [Suspect]
     Indication: MULTIPLE SCLEROSIS
     Route: 042
     Dates: start: 20110425
  2. TRAMADOL HCL [Concomitant]
     Indication: NECK PAIN
  3. PERCOCET [Concomitant]
     Indication: NECK PAIN
     Dates: start: 20110623
  4. LYRICA [Concomitant]
     Indication: NECK PAIN
     Dates: start: 20110623

REACTIONS (9)
  - NAUSEA [None]
  - MIGRAINE [None]
  - INSOMNIA [None]
  - NECK PAIN [None]
  - HALLUCINATION, AUDITORY [None]
  - POST-TRAUMATIC STRESS DISORDER [None]
  - HEPATIC ENZYME INCREASED [None]
  - WHITE BLOOD CELLS URINE [None]
  - VOMITING [None]
